FAERS Safety Report 7007880-4 (Version None)
Quarter: 2010Q3

REPORT INFORMATION
  Report Type: 
  Country: None (occurrence: None)
  Receive Date: 20100922
  Receipt Date: 20100917
  Transmission Date: 20110219
  Serious: Yes (Life-Threatening, Hospitalization, Other)
  Sender: FDA-Public Use
  Company Number: US-BAYER-201030727NA

PATIENT
  Age: 71 Year
  Sex: Female

DRUGS (1)
  1. MAGNEVIST [Suspect]
     Indication: ANGIOGRAM
     Dosage: TOTAL DAILY DOSE: 20 ML  UNIT DOSE: 20 ML
     Route: 042
     Dates: start: 20100812, end: 20100812

REACTIONS (7)
  - ANAPHYLACTIC REACTION [None]
  - COUGH [None]
  - DYSPNOEA [None]
  - NASAL CONGESTION [None]
  - PHARYNGEAL OEDEMA [None]
  - SWOLLEN TONGUE [None]
  - THROAT TIGHTNESS [None]
